FAERS Safety Report 23940117 (Version 3)
Quarter: 2024Q3

REPORT INFORMATION
  Report Type: Spontaneous
  Country: IT (occurrence: IT)
  Receive Date: 20240605
  Receipt Date: 20240823
  Transmission Date: 20241016
  Serious: Yes (Hospitalization, Other)
  Sender: AUROBINDO
  Company Number: IT-EMA-20160227-ashishvp-105437182

PATIENT
  Age: 45 Month
  Sex: Female

DRUGS (7)
  1. CETIRIZINE [Suspect]
     Active Substance: CETIRIZINE HYDROCHLORIDE
     Indication: Tonsillitis
     Dosage: UNK
     Route: 065
  2. ACETAMINOPHEN\CHLORPHENIRAMINE [Suspect]
     Active Substance: ACETAMINOPHEN\CHLORPHENIRAMINE
     Indication: Tonsillitis
     Dosage: UNK
     Route: 065
  3. FLUARIX NOS [Suspect]
     Active Substance: INFLUENZA VIRUS VACCINE
     Indication: Prophylaxis
     Dosage: UNK
     Route: 065
  4. FLUARIX NOS [Suspect]
     Active Substance: INFLUENZA VIRUS VACCINE
     Indication: Immunisation
  5. INFLUENZA VIRUS VACCINE [Suspect]
     Active Substance: INFLUENZA VIRUS VACCINE
     Indication: Immunisation
     Dosage: UNK
     Route: 065
  6. LEVODROPROPIZINE [Suspect]
     Active Substance: LEVODROPROPIZINE
     Indication: Tonsillitis
     Dosage: UNK
     Route: 065
  7. ACETAMINOPHEN\CHLORPHENIRAMINE MALEATE [Suspect]
     Active Substance: ACETAMINOPHEN\CHLORPHENIRAMINE MALEATE
     Indication: Tonsillitis
     Dosage: UNK
     Route: 065

REACTIONS (5)
  - Eye disorder [Recovered/Resolved]
  - Stevens-Johnson syndrome [Recovered/Resolved]
  - Mucosal disorder [Recovered/Resolved]
  - Oral disorder [Recovered/Resolved]
  - Off label use [Recovered/Resolved]
